FAERS Safety Report 20950816 (Version 2)
Quarter: 2022Q3

REPORT INFORMATION
  Report Type: Spontaneous
  Country: FR (occurrence: FR)
  Receive Date: 20220613
  Receipt Date: 20220719
  Transmission Date: 20221027
  Serious: Yes (Other)
  Sender: FDA-Public Use
  Company Number: None

PATIENT
  Age: 61 Year
  Sex: Female
  Weight: 68 kg

DRUGS (6)
  1. COMIRNATY [Suspect]
     Active Substance: TOZINAMERAN
     Indication: COVID-19 immunisation
     Dosage: DOSE 2, SINGLE
     Route: 048
     Dates: start: 20210518, end: 20210518
  2. IRBESARTAN [Suspect]
     Active Substance: IRBESARTAN
     Indication: Cardiovascular event prophylaxis
     Dosage: 75 MG, 1X/DAY
     Route: 048
     Dates: start: 201909
  3. ATORVASTATIN CALCIUM [Suspect]
     Active Substance: ATORVASTATIN CALCIUM
     Indication: Cardiovascular event prophylaxis
     Dosage: 20 MG, 1X/DAY
     Route: 048
     Dates: start: 201909, end: 20210713
  4. LIPTRUZET [Suspect]
     Active Substance: ATORVASTATIN CALCIUM\EZETIMIBE
     Indication: Cardiovascular event prophylaxis
     Dosage: 1 DF, 1X/DAY
     Route: 048
     Dates: start: 20210713, end: 20220224
  5. BISOPROLOL FUMARATE [Suspect]
     Active Substance: BISOPROLOL FUMARATE
     Indication: Cardiovascular event prophylaxis
     Dosage: 1.5 MG, 2X/DAY
     Route: 048
     Dates: start: 201909
  6. ASPIRIN [Suspect]
     Active Substance: ASPIRIN
     Indication: Cardiovascular event prophylaxis
     Dosage: 100 MG, 1X/DAY
     Route: 048
     Dates: start: 201909

REACTIONS (4)
  - Lichen planopilaris [Not Recovered/Not Resolved]
  - Pruritus [Not Recovered/Not Resolved]
  - Off label use [Unknown]
  - Off label use [Unknown]

NARRATIVE: CASE EVENT DATE: 20190901
